FAERS Safety Report 10167241 (Version 1)
Quarter: 2014Q2

REPORT INFORMATION
  Report Type: Other
  Country: CN (occurrence: CN)
  Receive Date: 20140512
  Receipt Date: 20140512
  Transmission Date: 20141212
  Serious: Yes (Death, Other)
  Sender: FDA-Public Use
  Company Number: CN-ACTELION-A-CH2014-98643

PATIENT
  Age: 28 Year
  Sex: Male

DRUGS (3)
  1. TRACLEER [Suspect]
     Indication: PULMONARY ARTERIAL HYPERTENSION
     Route: 048
  2. SILDENAFIL [Concomitant]
  3. PROSTACYCLIN [Concomitant]

REACTIONS (6)
  - Pulmonary hypertensive crisis [Fatal]
  - Cardiac failure [Fatal]
  - Chest pain [Unknown]
  - Ventricular septal defect repair [Unknown]
  - Patent ductus arteriosus repair [Unknown]
  - Angioplasty [Unknown]
